FAERS Safety Report 8290230 (Version 3)
Quarter: 2013Q2

REPORT INFORMATION
  Report Type: Spontaneous
  Country: US (occurrence: None)
  Receive Date: 20111122
  Receipt Date: 20120703
  Transmission Date: 20140414
  Serious: Yes (Other)
  Sender: FDA-Public Use
  Company Number: PHHY2011US49700

PATIENT
  Age: 36 Year
  Sex: Female

DRUGS (6)
  1. GILENYA [Suspect]
     Indication: MULTIPLE SCLEROSIS
  2. ?VITAMINS (NO INGREDIENTS/SUBSTANCES) [Concomitant]
  3. BACLOFEN [Concomitant]
  4. OMEPRAZOLE [Concomitant]
  5. VITAMIN D (ERGOCALCIFEROL) [Concomitant]
  6. AMBIEN [Concomitant]

REACTIONS (3)
  - CD4 LYMPHOCYTES DECREASED [None]
  - T-LYMPHOCYTE COUNT DECREASED [None]
  - White blood cell count decreased [None]
